FAERS Safety Report 9086299 (Version 2)
Quarter: 2013Q4

REPORT INFORMATION
  Report Type: Spontaneous
  Country: US (occurrence: US)
  Receive Date: 20130131
  Receipt Date: 20131107
  Transmission Date: 20140711
  Serious: Yes (Other)
  Sender: FDA-Public Use
  Company Number: US-BAYER-2013-012671

PATIENT
  Age: 23 Year
  Sex: Female

DRUGS (6)
  1. YAZ [Suspect]
     Route: 048
  2. YASMIN [Suspect]
     Route: 048
  3. TRAMADOL [Concomitant]
     Dosage: 50 MG, UNK
     Route: 048
  4. GENTAMYCIN [Concomitant]
     Route: 061
  5. AZITHROMYCIN [Concomitant]
     Dosage: 500 MG, UNK
     Route: 048
  6. APAP W/HYDROCODONE [Concomitant]
     Dosage: 5/500
     Route: 048

REACTIONS (5)
  - Gallbladder injury [None]
  - Biliary dyskinesia [None]
  - Cholecystitis chronic [None]
  - Injury [None]
  - Pain [None]
